FAERS Safety Report 18793305 (Version 1)
Quarter: 2021Q1

REPORT INFORMATION
  Report Type: Spontaneous
  Country: US (occurrence: US)
  Receive Date: 20210126
  Receipt Date: 20210126
  Transmission Date: 20210419
  Serious: No
  Sender: FDA-Public Use
  Company Number: None

PATIENT
  Age: 56 Year
  Sex: Female

DRUGS (12)
  1. REMODULIN [Concomitant]
     Active Substance: TREPROSTINIL
  2. TOPAMAX [Concomitant]
     Active Substance: TOPIRAMATE
  3. LASIX [Concomitant]
     Active Substance: FUROSEMIDE
  4. ZOLOFT [Concomitant]
     Active Substance: SERTRALINE HYDROCHLORIDE
  5. SEROQUEL [Concomitant]
     Active Substance: QUETIAPINE FUMARATE
  6. AMBRISENTAN [Suspect]
     Active Substance: AMBRISENTAN
     Indication: PULMONARY ARTERIAL HYPERTENSION
     Route: 048
  7. ROPINIROLE. [Concomitant]
     Active Substance: ROPINIROLE
  8. PANTOPRAZOLE [Concomitant]
     Active Substance: PANTOPRAZOLE
  9. BREO ELLIPTA [Concomitant]
     Active Substance: FLUTICASONE FUROATE\VILANTEROL TRIFENATATE
  10. XANAX [Concomitant]
     Active Substance: ALPRAZOLAM
  11. ALYQ [Suspect]
     Active Substance: TADALAFIL
     Indication: PULMONARY ARTERIAL HYPERTENSION
     Route: 048
  12. LORATADINE. [Concomitant]
     Active Substance: LORATADINE

REACTIONS (4)
  - Illness [None]
  - Pyrexia [None]
  - Migraine [None]
  - Therapy interrupted [None]

NARRATIVE: CASE EVENT DATE: 20210126
